FAERS Safety Report 13882397 (Version 2)
Quarter: 2017Q4

REPORT INFORMATION
  Report Type: Spontaneous
  Country: VE (occurrence: VE)
  Receive Date: 20170818
  Receipt Date: 20171004
  Transmission Date: 20180320
  Serious: Yes (Other)
  Sender: FDA-Public Use
  Company Number: PHHY2017VE121740

PATIENT
  Sex: Female

DRUGS (1)
  1. NILOTINIB [Suspect]
     Active Substance: NILOTINIB
     Indication: CHRONIC MYELOID LEUKAEMIA
     Dosage: UNK
     Route: 065
     Dates: start: 20150212

REACTIONS (5)
  - White blood cell count increased [Unknown]
  - Bone pain [Unknown]
  - Lymphadenopathy [Unknown]
  - Haematocrit increased [Unknown]
  - Thyroid neoplasm [Unknown]
